FAERS Safety Report 4735647-6 (Version None)
Quarter: 2005Q3

REPORT INFORMATION
  Report Type: 
  Country: None (occurrence: None)
  Receive Date: 20050805
  Receipt Date: 20050802
  Transmission Date: 20060218
  Serious: Yes (Death)
  Sender: FDA-Public Use
  Company Number: FR-GLAXOSMITHKLINE-B0389357A

PATIENT
  Age: 45 Year
  Sex: Female

DRUGS (2)
  1. TOPOTECAN [Suspect]
     Indication: OVARIAN CANCER
     Dosage: 1520MG PER DAY
     Route: 042
     Dates: start: 20050606, end: 20050606
  2. GEMCITABINE [Suspect]
     Indication: OVARIAN CANCER
     Dosage: 1520MG PER DAY
     Route: 042
     Dates: start: 20050606, end: 20050606

REACTIONS (2)
  - DEATH [None]
  - RESPIRATORY DISTRESS [None]
